FAERS Safety Report 4930529-9 (Version None)
Quarter: 2006Q1

REPORT INFORMATION
  Report Type: 
  Country: None (occurrence: None)
  Receive Date: 20060302
  Receipt Date: 20051110
  Transmission Date: 20060701
  Serious: Yes (Hospitalization, Disabling, Other)
  Sender: FDA-Public Use
  Company Number: US-MERCK-0511USA01893

PATIENT
  Age: 46 Year
  Sex: Male
  Weight: 102 kg

DRUGS (6)
  1. VIOXX [Suspect]
     Indication: ARTHRALGIA
     Route: 048
     Dates: start: 20000222, end: 20031223
  2. VIOXX [Suspect]
     Route: 048
     Dates: start: 20000222, end: 20031223
  3. VIOXX [Suspect]
     Route: 048
     Dates: start: 20000222, end: 20031223
  4. VIOXX [Suspect]
     Route: 048
     Dates: start: 20000222, end: 20031223
  5. TYLENOL (CAPLET) [Concomitant]
     Route: 065
  6. ADVIL [Concomitant]
     Route: 065

REACTIONS (21)
  - ADVERSE EVENT [None]
  - BACK PAIN [None]
  - BLOOD PRESSURE INCREASED [None]
  - CEREBROVASCULAR ACCIDENT [None]
  - DEPRESSION [None]
  - DIABETES MELLITUS NON-INSULIN-DEPENDENT [None]
  - DIZZINESS [None]
  - FALL [None]
  - HAEMATURIA [None]
  - HAEMORRHAGIC STROKE [None]
  - HEADACHE [None]
  - HYPERTENSION [None]
  - HYPERTENSIVE CRISIS [None]
  - INTERVERTEBRAL DISC PROTRUSION [None]
  - LACERATION [None]
  - PNEUMONIA PNEUMOCOCCAL [None]
  - PYREXIA [None]
  - RENAL FAILURE ACUTE [None]
  - RESPIRATORY RATE DECREASED [None]
  - SCIATICA [None]
  - SKELETAL INJURY [None]
